FAERS Safety Report 12846409 (Version 1)
Quarter: 2016Q4

REPORT INFORMATION
  Report Type: Report from Study
  Country: CA (occurrence: CA)
  Receive Date: 20161014
  Receipt Date: 20161014
  Transmission Date: 20170207
  Serious: Yes (Other)
  Sender: FDA-Public Use
  Company Number: CA-UCBSA-067981

PATIENT
  Age: 57 Year
  Sex: Female
  Weight: 115 kg

DRUGS (10)
  1. CERTOLIZUMAB PEGOL RA [Suspect]
     Active Substance: CERTOLIZUMAB PEGOL
     Dosage: UNK
     Dates: start: 201212, end: 20130321
  2. CIPRO [Concomitant]
     Active Substance: CIPROFLOXACIN HYDROCHLORIDE
     Indication: PRODUCT USED FOR UNKNOWN INDICATION
     Dosage: 500 MG, 2X/DAY (BID)
     Dates: start: 20121129
  3. SULFASALAZINE. [Concomitant]
     Active Substance: SULFASALAZINE
     Indication: RHEUMATOID ARTHRITIS
     Dosage: 1000 MG, 2X/DAY (BID)
     Route: 048
     Dates: start: 201009
  4. MTX [Concomitant]
     Active Substance: METHOTREXATE SODIUM
     Indication: RHEUMATOID ARTHRITIS
     Dosage: 25 MG, WEEKLY (QW)
     Route: 058
     Dates: start: 201009
  5. PLAQUENIL [Concomitant]
     Active Substance: HYDROXYCHLOROQUINE SULFATE
     Indication: RHEUMATOID ARTHRITIS
     Dosage: 200 MG, 2X/DAY (BID)
     Route: 048
     Dates: start: 201009
  6. SYNTHROID [Concomitant]
     Active Substance: LEVOTHYROXINE SODIUM
     Indication: HYPOTHYROIDISM
     Dosage: .05 MG, ONCE DAILY (QD)
     Route: 048
  7. CERTOLIZUMAB PEGOL RA [Suspect]
     Active Substance: CERTOLIZUMAB PEGOL
     Indication: RHEUMATOID ARTHRITIS
     Dosage: 200 MG, EV 2 WEEKS(QOW)
     Route: 058
     Dates: start: 20101206
  8. LASIX [Concomitant]
     Active Substance: FUROSEMIDE
     Indication: OEDEMA
     Dosage: 40 MG, ONCE DAILY (QD)
     Route: 048
  9. SUPRAX [Concomitant]
     Active Substance: CEFIXIME
     Indication: PRODUCT USED FOR UNKNOWN INDICATION
     Dosage: 400 MG, ONCE DAILY (QD)
     Dates: start: 2012, end: 20121010
  10. CERTOLIZUMAB PEGOL RA [Suspect]
     Active Substance: CERTOLIZUMAB PEGOL
     Dosage: UNK
     Dates: start: 20121020, end: 20121105

REACTIONS (7)
  - Feeling abnormal [Unknown]
  - Kidney infection [Recovered/Resolved]
  - Upper-airway cough syndrome [Unknown]
  - Urinary tract infection [Not Recovered/Not Resolved]
  - Influenza [Recovering/Resolving]
  - Knee arthroplasty [Unknown]
  - Skin infection [Unknown]

NARRATIVE: CASE EVENT DATE: 2012
